FAERS Safety Report 8926755 (Version 1)
Quarter: 2012Q4

REPORT INFORMATION
  Report Type: 
  Country: US (occurrence: US)
  Receive Date: 20121127
  Receipt Date: 20121127
  Transmission Date: 20130627
  Serious: No
  Sender: FDA-Public Use
  Company Number: US-PFIZER INC-2012292852

PATIENT
  Age: 69 Year
  Sex: Female
  Weight: 68 kg

DRUGS (4)
  1. PREMPRO [Suspect]
     Indication: PALPITATIONS
     Dosage: 1 DF, 1x/day, 0.625/2.5mg
     Route: 048
  2. PREMPRO [Suspect]
     Dosage: 1 DF, 1x/day, 0.3/1.5mg
     Route: 048
  3. METFORMIN [Concomitant]
     Indication: DIABETES
     Dosage: UNK
  4. LEVOTHYROXINE [Concomitant]
     Dosage: UNK

REACTIONS (4)
  - Off label use [Unknown]
  - Palpitations [Unknown]
  - Nasopharyngitis [Recovering/Resolving]
  - Cough [Recovering/Resolving]
